FAERS Safety Report 10953436 (Version 1)
Quarter: 2015Q1

REPORT INFORMATION
  Report Type: Spontaneous
  Country: NO (occurrence: NO)
  Receive Date: 20150325
  Receipt Date: 20150325
  Transmission Date: 20150721
  Serious: Yes (Other)
  Sender: FDA-Public Use
  Company Number: NO-BAXTER-2015BAX014481

PATIENT
  Age: 3 Year
  Sex: Male

DRUGS (3)
  1. SEVOFLURAN BAXTER 100%  V?SKE TIL INHALASJONSDAMP [Suspect]
     Active Substance: SEVOFLURANE
     Indication: ANAESTHESIA PROCEDURE
     Dosage: 7-3%
     Route: 055
     Dates: start: 20150303, end: 20150303
  2. ATROPINE [Suspect]
     Active Substance: ATROPINE
     Indication: ANAESTHESIA PROCEDURE
     Route: 042
     Dates: start: 20150303, end: 20150303
  3. FENTANYL. [Suspect]
     Active Substance: FENTANYL
     Indication: ANAESTHESIA PROCEDURE
     Route: 042
     Dates: start: 20150303, end: 20150303

REACTIONS (3)
  - Rales [Recovered/Resolved]
  - Increased bronchial secretion [Recovered/Resolved]
  - Anaesthetic complication [Recovered/Resolved]

NARRATIVE: CASE EVENT DATE: 20150303
